FAERS Safety Report 4301057-9 (Version None)
Quarter: 2004Q1

REPORT INFORMATION
  Report Type: 
  Country: None (occurrence: None)
  Receive Date: 20040219
  Receipt Date: 20040205
  Transmission Date: 20041129
  Serious: Yes (Other)
  Sender: FDA-Public Use
  Company Number: 04-038-0818

PATIENT
  Sex: Female

DRUGS (5)
  1. PACLITAXEL [Suspect]
     Indication: OVARIAN CANCER
     Dates: start: 20040128
  2. CARBOPLATIN [Suspect]
  3. CARBOPLATIN [Concomitant]
  4. DIPHENHYDRAMINE HCL [Concomitant]
  5. UNSPECIFIED CORTICOSTEROID [Concomitant]

REACTIONS (2)
  - FLUSHING [None]
  - RASH [None]
